FAERS Safety Report 4431143-4 (Version None)
Quarter: 2004Q3

REPORT INFORMATION
  Report Type: 
  Country: None (occurrence: None)
  Receive Date: 20040823
  Receipt Date: 20040823
  Transmission Date: 20050211
  Serious: Yes (Hospitalization)
  Sender: FDA-Public Use
  Company Number: None

PATIENT
  Sex: Female
  Weight: 70.1 kg

DRUGS (5)
  1. MYLOTARG [Suspect]
     Indication: ACUTE MYELOID LEUKAEMIA
     Dosage: 15.5 MG 2 HRS INFU INTRAVENOUS
     Route: 042
     Dates: start: 20040326, end: 20040326
  2. TAMOXIFEN CITRATE [Concomitant]
  3. DIFLUCAN [Concomitant]
  4. LEVAQUIN [Concomitant]
  5. SENOKOT [Concomitant]

REACTIONS (2)
  - CATHETER RELATED COMPLICATION [None]
  - CELLULITIS [None]
